FAERS Safety Report 8862762 (Version 1)
Quarter: 2012Q4

REPORT INFORMATION
  Report Type: 
  Country: ES (occurrence: ES)
  Receive Date: 20121026
  Receipt Date: 20121026
  Transmission Date: 20130627
  Serious: Yes (Death, Other)
  Sender: FDA-Public Use
  Company Number: ES-JNJFOC-20121008564

PATIENT
  Sex: Female

DRUGS (3)
  1. DOXORUBICIN HYDROCHLORIDE [Suspect]
     Indication: OVARIAN CANCER STAGE IV
     Dosage: 50 mg/m2 was starting dose. one patient with ovarian cancer, received 30 mg/m2 every 28 days.
     Route: 042
     Dates: start: 2011
  2. DOXORUBICIN HYDROCHLORIDE [Suspect]
     Indication: BREAST CANCER METASTATIC
     Dosage: 50 mg/m2 was starting dose. one patient with ovarian cancer, received 30 mg/m2 every 28 days.
     Route: 042
     Dates: start: 2011
  3. CARBOPLATINUM [Concomitant]
     Indication: PRODUCT USED FOR UNKNOWN INDICATION
     Dosage: in 1 patient who was on 30 mg/m2 of doxorubin hydrochloride every 28 days for ovarian cancer
     Route: 065

REACTIONS (13)
  - Death [Fatal]
  - Thrombocytopenia [Unknown]
  - Neurotoxicity [Unknown]
  - Skin toxicity [Unknown]
  - Disease progression [Unknown]
  - Neutropenia [Unknown]
  - Palmar-plantar erythrodysaesthesia syndrome [Unknown]
  - Drug ineffective [Unknown]
  - Mucosal inflammation [Unknown]
  - Conjunctivitis [Unknown]
  - Asthenia [Unknown]
  - Alopecia [Unknown]
  - Vomiting [Unknown]
